FAERS Safety Report 7043077-X (Version None)
Quarter: 2010Q3

REPORT INFORMATION
  Report Type: 
  Country: None (occurrence: None)
  Receive Date: 20100929
  Receipt Date: 20100813
  Transmission Date: 20110219
  Serious: No
  Sender: FDA-Public Use
  Company Number: US-WYE-H17013610

PATIENT
  Age: 22 Year
  Sex: Male
  Weight: 118.04 kg

DRUGS (2)
  1. PRISTIQ [Suspect]
     Indication: DEPRESSION
     Dosage: 25 MG 1X PER 1 DAY, ORAL, 50 MG 1X PER 1 DAY, ORAL
     Route: 048
     Dates: start: 20100728, end: 20100812
  2. PRISTIQ [Suspect]
     Indication: DEPRESSION
     Dosage: 25 MG 1X PER 1 DAY, ORAL, 50 MG 1X PER 1 DAY, ORAL
     Route: 048
     Dates: start: 20100813

REACTIONS (2)
  - DIZZINESS [None]
  - HEADACHE [None]
